FAERS Safety Report 16223181 (Version 1)
Quarter: 2019Q2

REPORT INFORMATION
  Report Type: Spontaneous
  Country: DE (occurrence: DE)
  Receive Date: 20190422
  Receipt Date: 20190422
  Transmission Date: 20190711
  Serious: Yes (Other)
  Sender: FDA-Public Use
  Company Number: DE-MYLANLABS-2019M1030359

PATIENT
  Sex: Female
  Weight: 73 kg

DRUGS (1)
  1. VALSARTAN DURA [Suspect]
     Active Substance: VALSARTAN
     Indication: HYPERTENSION
     Dosage: UNK, QD
     Route: 048

REACTIONS (6)
  - Dizziness [Unknown]
  - Blood pressure fluctuation [Unknown]
  - Hyperhidrosis [Unknown]
  - Aggression [Unknown]
  - Autonomic nervous system imbalance [Unknown]
  - Pain [Unknown]

NARRATIVE: CASE EVENT DATE: 2018
